FAERS Safety Report 6376134-1 (Version None)
Quarter: 2009Q3

REPORT INFORMATION
  Report Type: 
  Country: None (occurrence: None)
  Receive Date: 20090918
  Receipt Date: 20090915
  Transmission Date: 20100115
  Serious: Yes (Life-Threatening, Hospitalization)
  Sender: FDA-Public Use
  Company Number: 2009SP015549

PATIENT
  Age: 47 Year
  Sex: Female

DRUGS (1)
  1. PEG-INTRON [Suspect]
     Indication: MALIGNANT MELANOMA
     Dosage: 246 MCG; QW; SC
     Dates: start: 20090224, end: 20090514

REACTIONS (1)
  - CARDIAC FAILURE CONGESTIVE [None]
